FAERS Safety Report 25602039 (Version 3)
Quarter: 2025Q4

REPORT INFORMATION
  Report Type: Report from Study
  Country: US (occurrence: US)
  Receive Date: 20250724
  Receipt Date: 20251006
  Transmission Date: 20260117
  Serious: No
  Sender: AGIOS PHARMACEUTICALS
  Company Number: US-AGIOS-2507US04380

PATIENT
  Age: 29 Year
  Sex: Male

DRUGS (1)
  1. MITAPIVAT [Suspect]
     Active Substance: MITAPIVAT
     Indication: Pyruvate kinase deficiency anaemia
     Dosage: 5 MILLIGRAM, BID
     Route: 048
     Dates: start: 20250629

REACTIONS (8)
  - Dry mouth [Not Recovered/Not Resolved]
  - Product dose omission issue [Recovered/Resolved]
  - Product administration error [Recovered/Resolved]
  - Heart rate increased [Not Recovered/Not Resolved]
  - Thirst [Not Recovered/Not Resolved]
  - Haemoglobin decreased [Not Recovered/Not Resolved]
  - Blood bilirubin increased [Not Recovered/Not Resolved]
  - Red blood cell count increased [Not Recovered/Not Resolved]

NARRATIVE: CASE EVENT DATE: 20250708
